FAERS Safety Report 19435354 (Version 1)
Quarter: 2021Q2

REPORT INFORMATION
  Report Type: Spontaneous
  Country: JP (occurrence: JP)
  Receive Date: 20210617
  Receipt Date: 20210617
  Transmission Date: 20210717
  Serious: Yes (Other)
  Sender: FDA-Public Use
  Company Number: JP-CELLTRION INC.-2021JP008180

PATIENT

DRUGS (3)
  1. INFLIXIMAB BS FOR I.V. INFUSION100 MG [NK] [Suspect]
     Active Substance: INFLIXIMAB
     Indication: WEBER-CHRISTIAN DISEASE
     Dosage: 300 MG/DAY
     Route: 065
  2. FOSFOMYCIN [Concomitant]
     Active Substance: FOSFOMYCIN
     Dosage: 4 G/DAY
  3. FOSFOMYCIN [Concomitant]
     Active Substance: FOSFOMYCIN
     Dosage: 1 G/DAY

REACTIONS (4)
  - Papilloedema [Not Recovered/Not Resolved]
  - Headache [Unknown]
  - Off label use [Unknown]
  - Drug effective for unapproved indication [Unknown]
